FAERS Safety Report 18456789 (Version 1)
Quarter: 2020Q4

REPORT INFORMATION
  Report Type: Spontaneous
  Country: US (occurrence: US)
  Receive Date: 20201102
  Receipt Date: 20201102
  Transmission Date: 20210114
  Serious: Yes (Hospitalization)
  Sender: FDA-Public Use
  Company Number: None

PATIENT
  Age: 24 Year
  Sex: Male

DRUGS (5)
  1. ALBUTEROL. [Suspect]
     Active Substance: ALBUTEROL
     Indication: CYSTIC FIBROSIS
     Dosage: ?          OTHER FREQUENCY:EVERY 4 TO 6 HOURS;?
     Route: 048
     Dates: start: 20190114
  2. CLOBAZAM. [Concomitant]
     Active Substance: CLOBAZAM
     Dates: start: 20201026
  3. PULMOZYME [Suspect]
     Active Substance: DORNASE ALFA
     Indication: CYSTIC FIBROSIS
     Route: 048
     Dates: start: 20180131
  4. ZENPEP [Concomitant]
     Active Substance: PANCRELIPASE AMYLASE\PANCRELIPASE LIPASE\PANCRELIPASE PROTEASE
     Dates: start: 20190429
  5. FAMOTIDINE. [Concomitant]
     Active Substance: FAMOTIDINE
     Dates: start: 20201026

REACTIONS (2)
  - Cystic fibrosis [None]
  - Condition aggravated [None]

NARRATIVE: CASE EVENT DATE: 20201018
